FAERS Safety Report 8814729 (Version 2)
Quarter: 2012Q4

REPORT INFORMATION
  Report Type: Report from Study
  Country: ES (occurrence: ES)
  Receive Date: 20120928
  Receipt Date: 20121004
  Transmission Date: 20130627
  Serious: Yes (Other)
  Sender: FDA-Public Use
  Company Number: ES-JNJFOC-20110911796

PATIENT
  Age: 50 Year
  Sex: Female
  Weight: 65 kg

DRUGS (2)
  1. REMICADE [Suspect]
     Indication: UVEITIS
     Route: 042
     Dates: start: 20061127
  2. REMICADE [Suspect]
     Indication: UVEITIS
     Route: 042
     Dates: start: 20070702, end: 20070702

REACTIONS (2)
  - Infusion related reaction [Recovered/Resolved]
  - Periorbital oedema [Recovered/Resolved]
